FAERS Safety Report 12332648 (Version 2)
Quarter: 2016Q3

REPORT INFORMATION
  Report Type: Spontaneous
  Country: US (occurrence: US)
  Receive Date: 20160504
  Receipt Date: 20160811
  Transmission Date: 20161109
  Serious: No
  Sender: FDA-Public Use
  Company Number: US-PFIZER INC-2016240908

PATIENT
  Age: 84 Year
  Sex: Female

DRUGS (2)
  1. FASLODEX [Concomitant]
     Active Substance: FULVESTRANT
     Dosage: UNK
  2. IBRANCE [Suspect]
     Active Substance: PALBOCICLIB
     Dosage: 75 MG, UNK
     Dates: start: 20160401

REACTIONS (4)
  - Nausea [Unknown]
  - Constipation [Unknown]
  - Fatigue [Unknown]
  - Asthenia [Unknown]
